FAERS Safety Report 5265821-4 (Version None)
Quarter: 2007Q1

REPORT INFORMATION
  Report Type: 
  Country: None (occurrence: None)
  Receive Date: 20070313
  Receipt Date: 20070313
  Transmission Date: 20070707
  Serious: Yes (Life-Threatening, Hospitalization)
  Sender: FDA-Public Use
  Company Number: None

PATIENT
  Age: 26 Year
  Sex: Male
  Weight: 79.8331 kg

DRUGS (6)
  1. BACTRIM DS [Suspect]
     Indication: BRONCHITIS
     Dosage: 1 TABLET TWICE DAILY PO
     Route: 048
     Dates: start: 20060313, end: 20060318
  2. BACTRIM DS [Suspect]
     Indication: COUGH
     Dosage: 1 TABLET TWICE DAILY PO
     Route: 048
     Dates: start: 20060313, end: 20060318
  3. BACTRIM DS [Suspect]
     Indication: BRONCHITIS
     Dosage: 1 TABLET TWICE DAILY PO
     Route: 048
     Dates: start: 20060325, end: 20060325
  4. BACTRIM DS [Suspect]
     Indication: COUGH
     Dosage: 1 TABLET TWICE DAILY PO
     Route: 048
     Dates: start: 20060325, end: 20060325
  5. ALBUTEROL [Concomitant]
  6. BETAMTHASON DIPROPIONATE [Concomitant]

REACTIONS (11)
  - ASTHENIA [None]
  - COUGH [None]
  - DIZZINESS [None]
  - ERYTHEMA [None]
  - FEELING HOT [None]
  - FLUSHING [None]
  - MYALGIA [None]
  - NAUSEA [None]
  - PYREXIA [None]
  - TREATMENT NONCOMPLIANCE [None]
  - VOMITING [None]
